FAERS Safety Report 20646640 (Version 4)
Quarter: 2023Q2

REPORT INFORMATION
  Report Type: Spontaneous
  Country: SK (occurrence: SK)
  Receive Date: 20220329
  Receipt Date: 20230417
  Transmission Date: 20230722
  Serious: Yes (Other)
  Sender: FDA-Public Use
  Company Number: SK-ABBVIE-22K-260-4312750-00

PATIENT
  Age: 45 Year
  Sex: Female

DRUGS (6)
  1. ADALIMUMAB [Suspect]
     Active Substance: ADALIMUMAB
     Indication: Oligoarthritis
     Dosage: UNK
     Route: 058
     Dates: start: 2017, end: 202112
  2. ADALIMUMAB [Suspect]
     Active Substance: ADALIMUMAB
     Indication: Seronegative arthritis
  3. HYDROXYCHLOROQUINE [Concomitant]
     Active Substance: HYDROXYCHLOROQUINE
     Dosage: 200 MILLIGRAM
  4. SULFASALAZINE [Concomitant]
     Active Substance: SULFASALAZINE
     Dosage: 1 GRAM
  5. SULFASALAZINE [Concomitant]
     Active Substance: SULFASALAZINE
     Dosage: 1 GRAM
  6. UPADACITINIB [Concomitant]
     Active Substance: UPADACITINIB
     Dosage: UNK
     Dates: start: 202202

REACTIONS (13)
  - Arthropod bite [Recovered/Resolved]
  - Lupus-like syndrome [Unknown]
  - Butterfly rash [Unknown]
  - Cyst [Not Recovered/Not Resolved]
  - Meniscus injury [Unknown]
  - Synovial cyst [Unknown]
  - Erythema [Unknown]
  - Rosacea [Unknown]
  - Fatigue [Unknown]
  - Arthralgia [Unknown]
  - Inflammation [Unknown]
  - Alanine aminotransferase increased [Unknown]
  - Alopecia [Unknown]

NARRATIVE: CASE EVENT DATE: 20190101
